FAERS Safety Report 14243395 (Version 2)
Quarter: 2017Q4

REPORT INFORMATION
  Report Type: Spontaneous
  Country: US (occurrence: US)
  Receive Date: 20171201
  Receipt Date: 20171205
  Transmission Date: 20180321
  Serious: Yes (Hospitalization, Other)
  Sender: FDA-Public Use
  Company Number: US-PFIZER INC-2017512006

PATIENT
  Sex: Female
  Weight: 2.65 kg

DRUGS (4)
  1. AMIODARONE HCL [Suspect]
     Active Substance: AMIODARONE HYDROCHLORIDE
     Indication: JUNCTIONAL ECTOPIC TACHYCARDIA
     Dosage: 600 MG, EVERY 8 HOURS X 24 HOURS
     Route: 064
  2. SOTALOL. [Suspect]
     Active Substance: SOTALOL
     Indication: JUNCTIONAL ECTOPIC TACHYCARDIA
     Dosage: MAXIMUM DOSE 480 MG/DAY
     Route: 064
  3. DIGOXIN. [Concomitant]
     Active Substance: DIGOXIN
     Indication: JUNCTIONAL ECTOPIC TACHYCARDIA
     Dosage: UNK
     Route: 064
  4. AMIODARONE HCL [Suspect]
     Active Substance: AMIODARONE HYDROCHLORIDE
     Dosage: 300 MG, EVERY 12 HOURS
     Route: 064

REACTIONS (3)
  - Electrocardiogram QRS complex prolonged [Recovered/Resolved]
  - Bundle branch block left [Recovered/Resolved]
  - Maternal exposure during pregnancy [Unknown]
